FAERS Safety Report 7353879-8 (Version None)
Quarter: 2011Q1

REPORT INFORMATION
  Report Type: 
  Country: None (occurrence: None)
  Receive Date: 20110315
  Receipt Date: 20110311
  Transmission Date: 20110831
  Serious: Yes (Death, Hospitalization, Other)
  Sender: FDA-Public Use
  Company Number: US-ELI_LILLY_AND_COMPANY-US201102006477

PATIENT
  Sex: Female
  Weight: 89.8 kg

DRUGS (8)
  1. FORTEO [Suspect]
     Indication: OSTEOPOROSIS
     Dosage: 20 UG, UNK
     Dates: start: 20091202
  2. ELAVIL [Concomitant]
     Dosage: 50 MG, UNK
  3. TEMAZEPAM [Concomitant]
     Dosage: 30 MG, UNK
  4. CYMBALTA [Concomitant]
     Dosage: 60 MG, UNK
  5. SINGULAIR [Concomitant]
     Dosage: 10 MG, UNK
  6. PREVACID [Concomitant]
     Dosage: 30 MG, UNK
  7. DILAUDID [Concomitant]
     Dosage: 4 MG, UNK
  8. HYDROCHLOROTHIAZIDE [Concomitant]
     Dosage: 25 MG, UNK

REACTIONS (6)
  - DEPRESSION [None]
  - CARDIAC ARREST [None]
  - PAIN [None]
  - HOSPITALISATION [None]
  - HEPATIC CIRRHOSIS [None]
  - VENTRICULAR FIBRILLATION [None]
